FAERS Safety Report 13698625 (Version 2)
Quarter: 2017Q3

REPORT INFORMATION
  Report Type: Spontaneous
  Country: IT (occurrence: IT)
  Receive Date: 20170628
  Receipt Date: 20170802
  Transmission Date: 20171127
  Serious: Yes (Hospitalization)
  Sender: FDA-Public Use
  Company Number: IT-PFIZER INC-2017280778

PATIENT
  Age: 15 Year
  Sex: Male
  Weight: 61 kg

DRUGS (9)
  1. ANTRA [Concomitant]
     Active Substance: OMEPRAZOLE
     Dosage: 40 MG, UNK
     Route: 048
  2. CLENIL [Concomitant]
     Active Substance: BECLOMETHASONE DIPROPIONATE
     Dosage: 4 ML, UNK
  3. DAKTARIN [Concomitant]
     Active Substance: MICONAZOLE NITRATE
     Dosage: 3 DF, UNK
  4. MYELOSTIM [Concomitant]
     Dosage: 1 DF, UNK
     Route: 042
  5. METHOTREXATE SODIUM. [Suspect]
     Active Substance: METHOTREXATE SODIUM
     Indication: ACUTE LYMPHOCYTIC LEUKAEMIA
     Dosage: 8950 MG, CYCLIC
     Route: 042
     Dates: start: 20160321, end: 20160321
  6. BACTRIM [Concomitant]
     Active Substance: SULFAMETHOXAZOLE\TRIMETHOPRIM
     Dosage: 2 DF, UNK
     Dates: start: 20160321
  7. VINDESINE SULFATE [Suspect]
     Active Substance: VINDESINE SULFATE
     Indication: ACUTE LYMPHOCYTIC LEUKAEMIA
     Dosage: 5 MG, CYCLIC
     Route: 042
     Dates: start: 20160321, end: 20160321
  8. DEURSIL [Concomitant]
     Active Substance: URSODIOL
     Dosage: 900 MG, UNK
     Route: 048
  9. GLIVEC [Suspect]
     Active Substance: IMATINIB MESYLATE
     Indication: ACUTE LYMPHOCYTIC LEUKAEMIA
     Dosage: 500 MG, DAILY
     Route: 048
     Dates: start: 20151126, end: 20160325

REACTIONS (4)
  - Device related infection [Recovered/Resolved]
  - Influenza [Recovered/Resolved]
  - Pneumonitis [Recovered/Resolved]
  - Staphylococcal infection [Recovered/Resolved]

NARRATIVE: CASE EVENT DATE: 20160404
